FAERS Safety Report 9744574 (Version 1)
Quarter: 2013Q4

REPORT INFORMATION
  Report Type: Spontaneous
  Country: NL (occurrence: NL)
  Receive Date: 20131210
  Receipt Date: 20131210
  Transmission Date: 20140711
  Serious: Yes (Hospitalization)
  Sender: FDA-Public Use
  Company Number: NL-TEVA-448116ISR

PATIENT
  Age: 49 Year
  Sex: Female
  Weight: 85 kg

DRUGS (2)
  1. METFORMIN [Suspect]
     Dosage: 1700 MILLIGRAM DAILY; TWO TIMES
     Route: 048
     Dates: start: 20120618
  2. VIFOR FERINJECT [Suspect]
     Indication: IRON DEFICIENCY ANAEMIA
     Dosage: 1 VIAL
     Dates: start: 20130815, end: 20130815

REACTIONS (6)
  - Musculoskeletal stiffness [Recovering/Resolving]
  - Neck pain [Recovering/Resolving]
  - Myalgia [Recovering/Resolving]
  - Back pain [Recovering/Resolving]
  - Chest pain [Recovering/Resolving]
  - Pyrexia [Recovering/Resolving]
